FAERS Safety Report 25036197 (Version 1)
Quarter: 2025Q1

REPORT INFORMATION
  Report Type: Spontaneous
  Country: RU (occurrence: RU)
  Receive Date: 20250304
  Receipt Date: 20250304
  Transmission Date: 20250409
  Serious: Yes (Other)
  Sender: DAIICHI
  Company Number: RU-ASTRAZENECA-202409RUS010567RU

PATIENT
  Sex: Female

DRUGS (1)
  1. TRASTUZUMAB DERUXTECAN [Suspect]
     Active Substance: TRASTUZUMAB DERUXTECAN
     Indication: Breast cancer metastatic
     Route: 042
     Dates: start: 20240726, end: 20250203

REACTIONS (3)
  - Spinal fracture [Unknown]
  - Thrombocytopenia [Unknown]
  - Metastases to bone [Unknown]
